FAERS Safety Report 23302914 (Version 1)
Quarter: 2023Q4

REPORT INFORMATION
  Report Type: Spontaneous
  Country: US (occurrence: US)
  Receive Date: 20231215
  Receipt Date: 20231215
  Transmission Date: 20240109
  Serious: No
  Sender: FDA-Public Use
  Company Number: US-PRIMUS-2022-US-028045

PATIENT
  Age: 59 Year
  Sex: Female

DRUGS (2)
  1. IMPOYZ [Suspect]
     Active Substance: CLOBETASOL PROPIONATE
     Indication: Rash
     Dosage: APPLY TO AFFECTED AREAS ON HANDS TWICE DAILY FOR 2 WEEKS
     Route: 061
     Dates: start: 20221116, end: 20221125
  2. CRESTOR [Concomitant]
     Active Substance: ROSUVASTATIN CALCIUM
     Route: 065

REACTIONS (3)
  - Application site erythema [Unknown]
  - Application site dryness [Unknown]
  - Skin fissures [Unknown]
